FAERS Safety Report 7917754-X (Version None)
Quarter: 2011Q4

REPORT INFORMATION
  Report Type: 
  Country: None (occurrence: None)
  Receive Date: 20111114
  Receipt Date: 20111101
  Transmission Date: 20120403
  Serious: Yes (Other)
  Sender: FDA-Public Use
  Company Number: TPA2011A06895

PATIENT
  Age: 75 Year
  Sex: Male
  Weight: 124.2856 kg

DRUGS (11)
  1. MICARDIS HCT [Concomitant]
  2. FLOMAX [Concomitant]
  3. AMBIEN CR [Concomitant]
  4. LIPITOR [Concomitant]
  5. NITROGLYCERIN [Concomitant]
  6. LEXAPRO [Concomitant]
  7. AVODART [Concomitant]
  8. METOPROLOL ER (METOPROLOL) [Concomitant]
  9. ACTOS [Suspect]
     Indication: TYPE 2 DIABETES MELLITUS
     Dosage: 45 MG, 1 IN 1 D, PER ORAL
     Route: 048
     Dates: start: 20050701, end: 20111019
  10. ASPIRIN [Concomitant]
  11. PLAVIX [Concomitant]

REACTIONS (5)
  - HAEMATURIA [None]
  - BLADDER NEOPLASM [None]
  - POLLAKIURIA [None]
  - URINARY RETENTION [None]
  - PROSTATIC OBSTRUCTION [None]
